FAERS Safety Report 8144556-4 (Version None)
Quarter: 2012Q1

REPORT INFORMATION
  Report Type: 
  Country: None (occurrence: None)
  Receive Date: 20120217
  Receipt Date: 20120207
  Transmission Date: 20120608
  Serious: Yes (Other)
  Sender: FDA-Public Use
  Company Number: US-JNJFOC-20111205754

PATIENT
  Sex: Female

DRUGS (15)
  1. DIGOXIN [Concomitant]
     Route: 065
  2. AMOXICILLIN [Concomitant]
     Route: 065
  3. HYOSCYAMINE [Concomitant]
     Route: 065
  4. LOSARTAN POTASSIUM [Concomitant]
     Route: 065
  5. MIRALAX [Concomitant]
     Route: 065
  6. SOLU-MEDROL [Concomitant]
     Indication: PREMEDICATION
     Route: 042
  7. DEXILANT [Concomitant]
     Route: 065
  8. PEPCID [Concomitant]
     Route: 065
  9. REMICADE [Suspect]
     Indication: RHEUMATOID ARTHRITIS
     Route: 042
  10. NAPROXEN SODIUM [Concomitant]
     Route: 065
  11. PREMARIN [Concomitant]
     Route: 065
  12. REMICADE [Suspect]
     Route: 042
     Dates: start: 20111101
  13. SIMVASTATIN [Concomitant]
     Route: 065
  14. FLUCONAZOLE [Concomitant]
     Route: 065
  15. METHOTREXATE [Concomitant]
     Route: 065

REACTIONS (2)
  - PARAESTHESIA [None]
  - RHEUMATOID ARTHRITIS [None]
